FAERS Safety Report 8414747-3 (Version None)
Quarter: 2012Q2

REPORT INFORMATION
  Report Type: 
  Country: None (occurrence: None)
  Receive Date: 20120605
  Receipt Date: 20120604
  Transmission Date: 20120825
  Serious: Yes (Other)
  Sender: FDA-Public Use
  Company Number: DE-AMGEN-DEUSP2012023059

PATIENT
  Sex: Male

DRUGS (2)
  1. XGEVA [Suspect]
     Indication: PROSTATE CANCER
     Route: 065
  2. XGEVA [Suspect]
     Indication: METASTASES TO BONE

REACTIONS (3)
  - DEVICE RELATED INFECTION [None]
  - CHILLS [None]
  - FEELING COLD [None]
